FAERS Safety Report 8992828 (Version 3)
Quarter: 2013Q1

REPORT INFORMATION
  Report Type: Spontaneous
  Country: US (occurrence: US)
  Receive Date: 20130102
  Receipt Date: 20130216
  Transmission Date: 20140127
  Serious: No
  Sender: FDA-Public Use
  Company Number: US-009507513-1212USA011080

PATIENT
  Sex: 0
  Weight: 75.57 kg

DRUGS (1)
  1. NEXPLANON [Suspect]
     Dosage: 1 DF, UNK
     Route: 059
     Dates: start: 20121226

REACTIONS (3)
  - Product quality issue [Unknown]
  - Device difficult to use [Unknown]
  - No adverse event [Unknown]
